FAERS Safety Report 6842511-5 (Version None)
Quarter: 2010Q3

REPORT INFORMATION
  Report Type: 
  Country: None (occurrence: None)
  Receive Date: 20100714
  Receipt Date: 20100708
  Transmission Date: 20110219
  Serious: Yes (Hospitalization)
  Sender: FDA-Public Use
  Company Number: FR-AMGEN-QUU422977

PATIENT
  Sex: Male

DRUGS (8)
  1. NPLATE [Suspect]
     Indication: IDIOPATHIC THROMBOCYTOPENIC PURPURA
     Route: 058
     Dates: start: 20100416, end: 20100507
  2. VASTEN [Concomitant]
  3. NEXIUM [Concomitant]
  4. GAVISCON [Concomitant]
  5. ZOLPIDEM [Concomitant]
  6. CORTANCYL [Concomitant]
     Dates: end: 20100423
  7. CACIT VITAMINE D3 [Concomitant]
  8. DIFFU K [Concomitant]

REACTIONS (3)
  - CHILLS [None]
  - HYPERTHERMIA [None]
  - PLATELET COUNT INCREASED [None]
